FAERS Safety Report 7141242-4 (Version None)
Quarter: 2010Q4

REPORT INFORMATION
  Report Type: 
  Country: None (occurrence: None)
  Receive Date: 20101203
  Receipt Date: 20101203
  Transmission Date: 20110411
  Serious: No
  Sender: FDA-Public Use
  Company Number: None

PATIENT
  Age: 56 Year
  Sex: Male
  Weight: 86.1834 kg

DRUGS (1)
  1. LEVAQUIN [Suspect]
     Indication: BLADDER CANCER
     Dosage: 1 TABLET DAILY PO
     Route: 048
     Dates: start: 20090514, end: 20090515

REACTIONS (1)
  - TENDON RUPTURE [None]
